FAERS Safety Report 5891425-6 (Version None)
Quarter: 2008Q3

REPORT INFORMATION
  Report Type: 
  Country: None (occurrence: None)
  Receive Date: 20080922
  Receipt Date: 20080910
  Transmission Date: 20090109
  Serious: Yes (Other)
  Sender: FDA-Public Use
  Company Number: US-BAYER-200833284NA

PATIENT
  Age: 59 Year
  Sex: Male
  Weight: 61 kg

DRUGS (2)
  1. MAGNEVIST [Suspect]
     Indication: NUCLEAR MAGNETIC RESONANCE IMAGING
     Dosage: TOTAL DAILY DOSE: 20 ML
     Route: 042
     Dates: start: 20080731, end: 20080731
  2. MAGNEVIST [Suspect]
     Dosage: TOTAL DAILY DOSE: 20 ML
     Dates: start: 20080804, end: 20080804

REACTIONS (8)
  - ARTHRALGIA [None]
  - DEBRIDEMENT [None]
  - HYPERKERATOSIS [None]
  - INTENTIONAL SELF-INJURY [None]
  - JOINT RANGE OF MOTION DECREASED [None]
  - NEPHROGENIC SYSTEMIC FIBROSIS [None]
  - PAIN [None]
  - SKIN DISORDER [None]
